FAERS Safety Report 5131643-8 (Version None)
Quarter: 2006Q4

REPORT INFORMATION
  Report Type: 
  Country: None (occurrence: None)
  Receive Date: 20061020
  Receipt Date: 20061010
  Transmission Date: 20070319
  Serious: Yes (Disabling)
  Sender: FDA-Public Use
  Company Number: US-JNJFOC-20061004031

PATIENT
  Sex: Male
  Weight: 104.33 kg

DRUGS (4)
  1. MOTRIN [Suspect]
     Indication: BACK DISORDER
     Route: 048
  2. MOTRIN [Suspect]
     Indication: ARTHROPATHY
     Route: 048
  3. OXYCONTIN [Concomitant]
     Indication: DRUG USE FOR UNKNOWN INDICATION
  4. VALIUM [Concomitant]
     Indication: MUSCLE RELAXANT THERAPY

REACTIONS (1)
  - PROSTATIC OPERATION [None]
